FAERS Safety Report 9774405 (Version 1)
Quarter: 2013Q4

REPORT INFORMATION
  Report Type: Spontaneous
  Country: GB (occurrence: GB)
  Receive Date: 20131220
  Receipt Date: 20131220
  Transmission Date: 20140711
  Serious: Yes (Hospitalization)
  Sender: FDA-Public Use
  Company Number: GB-NOVOPROD-395508

PATIENT
  Age: 54 Year
  Sex: Female
  Weight: 66.67 kg

DRUGS (2)
  1. LEVEMIR PENFILL [Suspect]
     Indication: DIABETES MELLITUS
     Dosage: 16 U, QD (8 IN DAY, 8 AT NIGHT)
  2. NOVORAPID PENFILL [Suspect]
     Indication: DIABETES MELLITUS
     Dosage: 6 U, (BEFORE MEALS)

REACTIONS (2)
  - Fall [Unknown]
  - Hypoglycaemia [Unknown]
